FAERS Safety Report 9457689 (Version 3)
Quarter: 2013Q3

REPORT INFORMATION
  Report Type: Spontaneous
  Country: AR (occurrence: AR)
  Receive Date: 20130814
  Receipt Date: 20130925
  Transmission Date: 20140515
  Serious: Yes (Death, Hospitalization, Other)
  Sender: FDA-Public Use
  Company Number: AR-AMGEN-ARGSP2013056987

PATIENT
  Age: 53 Year
  Sex: Female

DRUGS (1)
  1. ENBREL [Suspect]
     Indication: RHEUMATOID ARTHRITIS
     Dosage: UNK
     Route: 065
     Dates: start: 20090601

REACTIONS (8)
  - Foreign body [Not Recovered/Not Resolved]
  - Cholelithiasis [Fatal]
  - Rheumatoid arthritis [Unknown]
  - Arthropathy [Recovered/Resolved]
  - Osteoarthritis [Unknown]
  - Abdominal pain upper [Unknown]
  - Yellow skin [Unknown]
  - Pyrexia [Unknown]
